FAERS Safety Report 23993557 (Version 1)
Quarter: 2024Q2

REPORT INFORMATION
  Report Type: Spontaneous
  Country: US (occurrence: US)
  Receive Date: 20240620
  Receipt Date: 20240620
  Transmission Date: 20240715
  Serious: Yes (Hospitalization, Other)
  Sender: FDA-Public Use
  Company Number: US-AUROBINDO-AUR-APL-2023-040288

PATIENT
  Age: 36 Year
  Sex: Female

DRUGS (4)
  1. OLANZAPINE [Suspect]
     Active Substance: OLANZAPINE
     Indication: Product used for unknown indication
     Dosage: UNK
     Route: 048
  2. BUPRENORPHINE AND NALOXONE [Suspect]
     Active Substance: BUPRENORPHINE HYDROCHLORIDE\NALOXONE HYDROCHLORIDE
     Indication: Product used for unknown indication
     Dosage: 1 DOSAGE FORM, ONCE A DAY
     Route: 065
  3. OLANZAPINE\SAMIDORPHAN [Suspect]
     Active Substance: OLANZAPINE\SAMIDORPHAN
     Indication: Product used for unknown indication
     Dosage: 1 DOSAGE FORM, DAILY
     Route: 065
  4. BUPRENORPHINE [Concomitant]
     Active Substance: BUPRENORPHINE\BUPRENORPHINE HYDROCHLORIDE
     Indication: Product used for unknown indication
     Dosage: 16 MILLIGRAM
     Route: 060

REACTIONS (4)
  - Drug withdrawal syndrome [Recovering/Resolving]
  - Dystonia [Unknown]
  - Hyperhidrosis [Unknown]
  - Muscle spasms [Unknown]
